FAERS Safety Report 25110964 (Version 1)
Quarter: 2025Q1

REPORT INFORMATION
  Report Type: Spontaneous
  Country: US (occurrence: US)
  Receive Date: 20250324
  Receipt Date: 20250324
  Transmission Date: 20250408
  Serious: No
  Sender: Velzen Pharma
  Company Number: US-Velzen pharma pvt ltd-2173524

PATIENT

DRUGS (1)
  1. NIFEDIPINE [Suspect]
     Active Substance: NIFEDIPINE
     Indication: Blood pressure measurement

REACTIONS (2)
  - Myalgia [Unknown]
  - Product use in unapproved indication [Unknown]
